FAERS Safety Report 4530777-6 (Version None)
Quarter: 2004Q4

REPORT INFORMATION
  Report Type: 
  Country: None (occurrence: None)
  Receive Date: 20041216
  Receipt Date: 20041126
  Transmission Date: 20050328
  Serious: Yes (Hospitalization, Disabling, Other)
  Sender: FDA-Public Use
  Company Number: GBS041115869

PATIENT
  Age: 60 Year
  Sex: Female
  Weight: 64 kg

DRUGS (1)
  1. EVISTA [Suspect]
     Indication: OSTEOPENIA
     Dosage: 60 MG DAY
     Dates: start: 20031222, end: 20041003

REACTIONS (6)
  - ANEURYSM [None]
  - BASILAR ARTERY OCCLUSION [None]
  - CEREBRAL ARTERY OCCLUSION [None]
  - CONGENITAL ATRIAL SEPTAL DEFECT [None]
  - HEMIANOPIA HOMONYMOUS [None]
  - THROMBOEMBOLIC STROKE [None]
